FAERS Safety Report 18549079 (Version 2)
Quarter: 2020Q4

REPORT INFORMATION
  Report Type: Report from Study
  Country: US (occurrence: US)
  Receive Date: 20201126
  Receipt Date: 20201207
  Transmission Date: 20210114
  Serious: Yes (Hospitalization)
  Sender: FDA-Public Use
  Company Number: US-GILEAD-2020-0505942

PATIENT
  Age: 69 Year
  Sex: Female
  Weight: 67.5 kg

DRUGS (16)
  1. FORMOTEROL [Concomitant]
     Active Substance: FORMOTEROL
  2. PHOSPHORUS [Concomitant]
     Active Substance: PHOSPHORUS
  3. ACETAMINOPHEN. [Concomitant]
     Active Substance: ACETAMINOPHEN
  4. TADALAFIL. [Concomitant]
     Active Substance: TADALAFIL
  5. INSULIN ASPART [Concomitant]
     Active Substance: INSULIN ASPART
  6. AMBRISENTAN [Suspect]
     Active Substance: AMBRISENTAN
     Indication: PULMONARY ARTERIAL HYPERTENSION
     Dosage: 10 MG, QD
     Route: 048
  7. BUDESONIDE. [Concomitant]
     Active Substance: BUDESONIDE
  8. INFLUENZA VIRUS VACCINE [Concomitant]
     Active Substance: INFLUENZA VIRUS VACCINE
  9. MAGNESIUM [Concomitant]
     Active Substance: MAGNESIUM
  10. ONDANSETRON [Concomitant]
     Active Substance: ONDANSETRON
  11. PANTOPRAZOLE [Concomitant]
     Active Substance: PANTOPRAZOLE
  12. CALCIUM [Concomitant]
     Active Substance: CALCIUM
  13. WARFARIN [Suspect]
     Active Substance: WARFARIN
     Indication: PRODUCT USED FOR UNKNOWN INDICATION
     Route: 065
  14. DOCUSATE SODIUM. [Concomitant]
     Active Substance: DOCUSATE SODIUM
  15. PRAVASTATIN. [Concomitant]
     Active Substance: PRAVASTATIN
  16. SENNA ALEXANDRINA [Concomitant]
     Active Substance: SENNA LEAF

REACTIONS (3)
  - Haemoptysis [Unknown]
  - Bronchitis [Unknown]
  - Intentional dose omission [Unknown]
